FAERS Safety Report 15318839 (Version 1)
Quarter: 2018Q3

REPORT INFORMATION
  Report Type: Spontaneous
  Country: US (occurrence: US)
  Receive Date: 20180819
  Receipt Date: 20180819
  Transmission Date: 20181010
  Serious: Yes (Other)
  Sender: FDA-Public Use
  Company Number: None

PATIENT
  Age: 62 Year
  Sex: Male

DRUGS (5)
  1. LEVOFLOXACIN. [Suspect]
     Active Substance: LEVOFLOXACIN
     Indication: EPIDIDYMITIS
     Route: 048
     Dates: start: 20180817, end: 20180819
  2. SIMVASTATIN 20 MG [Concomitant]
     Active Substance: SIMVASTATIN
     Dates: start: 20180720
  3. ALLOPURINOL 300 MG [Concomitant]
     Active Substance: ALLOPURINOL
     Dates: start: 20180807
  4. LEVOTHYROXINE 88 MCG [Concomitant]
     Active Substance: LEVOTHYROXINE
     Dates: start: 20180720
  5. LOSARTAN?HCTZ 100?12.5 MG [Concomitant]
     Dates: start: 20180720

REACTIONS (1)
  - Tendon pain [None]

NARRATIVE: CASE EVENT DATE: 20180818
